FAERS Safety Report 5950735-4 (Version None)
Quarter: 2008Q4

REPORT INFORMATION
  Report Type: 
  Country: None (occurrence: None)
  Receive Date: 20081112
  Receipt Date: 20080924
  Transmission Date: 20090506
  Serious: No
  Sender: FDA-Public Use
  Company Number: US-B.I. PHARMACEUTICALS,INC./RIDGEFIELD-2008-BP-14970BP

PATIENT
  Age: 77 Year
  Sex: Male

DRUGS (1)
  1. SPIRIVA [Suspect]
     Route: 055
     Dates: start: 20080401, end: 20080901

REACTIONS (10)
  - ABDOMINAL PAIN UPPER [None]
  - BACK PAIN [None]
  - BLOOD URINE PRESENT [None]
  - CONSTIPATION [None]
  - DYSPEPSIA [None]
  - DYSPHONIA [None]
  - DYSURIA [None]
  - ERUCTATION [None]
  - FLANK PAIN [None]
  - NASAL CONGESTION [None]
